FAERS Safety Report 13688992 (Version 1)
Quarter: 2017Q2

REPORT INFORMATION
  Report Type: Spontaneous
  Country: JP (occurrence: JP)
  Receive Date: 20170626
  Receipt Date: 20170626
  Transmission Date: 20170830
  Serious: Yes (Hospitalization)
  Sender: FDA-Public Use
  Company Number: JP-TEVA-2016-000898

PATIENT
  Age: 68 Year
  Sex: Female

DRUGS (8)
  1. MECOBALAMIN [Concomitant]
     Active Substance: METHYLCOBALAMIN
  2. SOLANAX [Concomitant]
     Active Substance: ALPRAZOLAM
     Route: 048
  3. VASOLAN                            /00014302/ [Concomitant]
     Active Substance: VERAPAMIL HYDROCHLORIDE
  4. VOGLIBOSE [Concomitant]
     Active Substance: VOGLIBOSE
  5. JANUVIA [Concomitant]
     Active Substance: SITAGLIPTIN PHOSPHATE
     Route: 048
  6. ATORVASTATIN CALCIUM. [Concomitant]
     Active Substance: ATORVASTATIN CALCIUM
     Route: 048
  7. CALONAL [Concomitant]
     Active Substance: ACETAMINOPHEN
  8. BENET [Suspect]
     Active Substance: RISEDRONATE SODIUM
     Indication: OSTEOPOROSIS
     Dosage: 75 MG ONCE MONTHLY
     Route: 048
     Dates: start: 20160404, end: 20160404

REACTIONS (6)
  - Nausea [Unknown]
  - Myalgia [Recovering/Resolving]
  - Headache [Recovering/Resolving]
  - Inappropriate schedule of drug administration [Unknown]
  - Acute phase reaction [Unknown]
  - Abdominal discomfort [Recovering/Resolving]

NARRATIVE: CASE EVENT DATE: 20160405
